FAERS Safety Report 21309255 (Version 1)
Quarter: 2022Q3

REPORT INFORMATION
  Report Type: Spontaneous
  Country: US (occurrence: US)
  Receive Date: 20220908
  Receipt Date: 20220908
  Transmission Date: 20221027
  Serious: Yes (Other)
  Sender: FDA-Public Use
  Company Number: US-SA-SAC20220905000109

PATIENT
  Sex: Male

DRUGS (4)
  1. ZANTAC [Suspect]
     Active Substance: RANITIDINE HYDROCHLORIDE
     Dosage: PRESCRIPTION ZANTAC FROM APPROXIMATELY 2010 TO 2015; OVER THE COUNTER ZANTAC FROM APPROXIMATELY 2010
     Route: 048
     Dates: start: 2010, end: 2015
  2. ZANTAC [Suspect]
     Active Substance: RANITIDINE HYDROCHLORIDE
     Dosage: OVER THE COUNTER ZANTAC FROM APPROXIMATELY 2010 TO 2015
     Route: 048
     Dates: start: 2010, end: 2015
  3. RANITIDINE HYDROCHLORIDE [Suspect]
     Active Substance: RANITIDINE HYDROCHLORIDE
     Dosage: OVER THE COUNTER RANITIDINE FROM APPROXIMATELY 2010 TO 2015; PRESCRIPTION RANITIDINE FROM APPROXIMAT
     Route: 048
     Dates: start: 2010, end: 2015
  4. RANITIDINE HYDROCHLORIDE [Suspect]
     Active Substance: RANITIDINE HYDROCHLORIDE
     Dosage: PRESCRIPTION RANITIDINE FROM APPROXIMATELY 2010 TO 2015
     Route: 048
     Dates: start: 2010, end: 2015

REACTIONS (1)
  - Prostate cancer [Unknown]
